FAERS Safety Report 26101045 (Version 1)
Quarter: 2025Q4

REPORT INFORMATION
  Report Type: Spontaneous
  Country: CN (occurrence: CN)
  Receive Date: 20251128
  Receipt Date: 20251128
  Transmission Date: 20260117
  Serious: Yes (Hospitalization)
  Sender: MERCK SHARP & DOHME LLC
  Company Number: CN-009507513-2353139

PATIENT
  Age: 76 Year
  Sex: Female
  Weight: 51 kg

DRUGS (6)
  1. PEMBROLIZUMAB [Suspect]
     Active Substance: PEMBROLIZUMAB
     Indication: Colon cancer
     Dosage: TIME INTERVAL: TOTAL
     Route: 041
     Dates: start: 20251014, end: 20251014
  2. PEMBROLIZUMAB [Suspect]
     Active Substance: PEMBROLIZUMAB
     Indication: Colon cancer
     Route: 041
     Dates: start: 202511, end: 202511
  3. OXALIPLATIN [Suspect]
     Active Substance: OXALIPLATIN
     Indication: Colon cancer
     Dosage: TIME INTERVAL: TOTAL: LYOPHILIZED FORMULATION
     Route: 041
     Dates: start: 20251013, end: 20251013
  4. OXALIPLATIN [Suspect]
     Active Substance: OXALIPLATIN
     Indication: Colon cancer
     Dosage: LYOPHILIZED FORMULATION
     Route: 041
     Dates: start: 202511, end: 202511
  5. CAPECITABINE [Suspect]
     Active Substance: CAPECITABINE
     Indication: Colon cancer
     Dosage: TIME INTERVAL: CYCLICAL: 1 G, TWICE DAILY (BID), CYCLICAL
     Route: 048
     Dates: start: 20251013, end: 20251026
  6. CAPECITABINE [Suspect]
     Active Substance: CAPECITABINE
     Indication: Colon cancer
     Dosage: TIME INTERVAL: CYCLICAL: 1 G, TWICE DAILY (BID), CYCLICAL
     Route: 048
     Dates: start: 202511, end: 202511

REACTIONS (1)
  - Platelet count decreased [Recovering/Resolving]

NARRATIVE: CASE EVENT DATE: 20251105
